FAERS Safety Report 11968859 (Version 1)
Quarter: 2016Q1

REPORT INFORMATION
  Report Type: Spontaneous
  Country: US (occurrence: None)
  Receive Date: 20160127
  Receipt Date: 20160127
  Transmission Date: 20160526
  Serious: Yes (Hospitalization, Disabling)
  Sender: FDA-Public Use
  Company Number: None

PATIENT
  Age: 55 Year
  Sex: Male
  Weight: 59 kg

DRUGS (3)
  1. TRUVACAI [Concomitant]
  2. REMERON [Suspect]
     Active Substance: MIRTAZAPINE
     Indication: DEPRESSION
     Dosage: 1 PILL / DAY
     Route: 048
     Dates: start: 20160112, end: 20160121
  3. TRUVADA [Concomitant]
     Active Substance: EMTRICITABINE\TENOFOVIR DISOPROXIL FUMARATE

REACTIONS (4)
  - Paraesthesia [None]
  - Pain in extremity [None]
  - Dysstasia [None]
  - Abasia [None]

NARRATIVE: CASE EVENT DATE: 20160114
